FAERS Safety Report 4654581-3 (Version None)
Quarter: 2005Q2

REPORT INFORMATION
  Report Type: 
  Country: None (occurrence: None)
  Receive Date: 20050504
  Receipt Date: 20050504
  Transmission Date: 20051028
  Serious: Yes (Hospitalization)
  Sender: FDA-Public Use
  Company Number: None

PATIENT
  Age: 34 Year
  Sex: Female
  Weight: 222 kg

DRUGS (11)
  1. WARFARIN SODIUM [Suspect]
     Indication: DEEP VEIN THROMBOSIS
     Dosage: 5 MG DAILY ORAL
     Route: 048
     Dates: start: 20040601, end: 20041120
  2. ALBUTEROL [Concomitant]
  3. PENICILLIN VK [Concomitant]
  4. TRAMADOL [Concomitant]
  5. SINGULAIR [Concomitant]
  6. ACETAMINOPHEN AND CODEINE PHOSPHATE [Concomitant]
  7. FERROUS SULFATE TAB [Concomitant]
  8. CUMBALTA [Concomitant]
  9. SKELAXIN [Concomitant]
  10. METFORMIN [Concomitant]
  11. FLOVENT [Concomitant]

REACTIONS (4)
  - GINGIVAL BLEEDING [None]
  - HAEMATURIA [None]
  - HEPATIC MASS [None]
  - INTERNATIONAL NORMALISED RATIO INCREASED [None]
